FAERS Safety Report 4854229-9 (Version None)
Quarter: 2005Q4

REPORT INFORMATION
  Report Type: 
  Country: None (occurrence: None)
  Receive Date: 20051213
  Receipt Date: 20051213
  Transmission Date: 20060501
  Serious: Yes (Hospitalization)
  Sender: FDA-Public Use
  Company Number: None

PATIENT
  Age: 28 Year
  Sex: Female
  Weight: 64.4108 kg

DRUGS (2)
  1. FACTIVE [Suspect]
     Indication: BRONCHITIS VIRAL
     Dosage: ONE PILL ONCE DAILY PO
     Route: 048
     Dates: start: 20051203, end: 20051207
  2. FACTIVE [Suspect]
     Indication: SINUSITIS
     Dosage: ONE PILL ONCE DAILY PO
     Route: 048
     Dates: start: 20051203, end: 20051207

REACTIONS (2)
  - RASH GENERALISED [None]
  - URTICARIA [None]
